FAERS Safety Report 7510828-7 (Version None)
Quarter: 2011Q2

REPORT INFORMATION
  Report Type: 
  Country: None (occurrence: None)
  Receive Date: 20110531
  Receipt Date: 20110520
  Transmission Date: 20111010
  Serious: No
  Sender: FDA-Public Use
  Company Number: US-BIOGENIDEC-2011BI004728

PATIENT
  Age: 56 Year
  Sex: Female

DRUGS (6)
  1. PREDNISONE [Concomitant]
     Indication: PREMEDICATION
     Route: 048
  2. TYSABRI [Suspect]
     Indication: MULTIPLE SCLEROSIS
     Route: 042
     Dates: start: 20101230, end: 20110127
  3. TYSABRI [Suspect]
     Route: 042
     Dates: start: 20110421
  4. ACETAMINOPHEN [Concomitant]
     Indication: PREMEDICATION
  5. BENADRYL [Concomitant]
     Indication: PREMEDICATION
     Route: 042
  6. SOLU-CORTEF [Concomitant]
     Indication: PREMEDICATION
     Route: 042

REACTIONS (10)
  - PALPITATIONS [None]
  - RASH [None]
  - DIZZINESS [None]
  - PARAESTHESIA ORAL [None]
  - FATIGUE [None]
  - ADVERSE DRUG REACTION [None]
  - HYPERSENSITIVITY [None]
  - INCORRECT DRUG ADMINISTRATION DURATION [None]
  - RASH PRURITIC [None]
  - UNDERDOSE [None]
